FAERS Safety Report 8008020-5 (Version None)
Quarter: 2011Q4

REPORT INFORMATION
  Report Type: 
  Country: None (occurrence: None)
  Receive Date: 20111227
  Receipt Date: 20111215
  Transmission Date: 20120403
  Serious: Yes (Hospitalization)
  Sender: FDA-Public Use
  Company Number: PHHY2011DE109664

PATIENT
  Age: 59 Year
  Sex: Female

DRUGS (1)
  1. ZOMETA [Suspect]
     Indication: BREAST CANCER
     Dosage: 4 MG/5ML, DAILY
     Route: 042
     Dates: start: 20110505, end: 20110505

REACTIONS (7)
  - C-REACTIVE PROTEIN INCREASED [None]
  - MYALGIA [None]
  - RED BLOOD CELL SEDIMENTATION RATE INCREASED [None]
  - PYREXIA [None]
  - GASTROINTESTINAL PAIN [None]
  - CHILLS [None]
  - NASOPHARYNGITIS [None]
